FAERS Safety Report 7111788-3 (Version None)
Quarter: 2010Q4

REPORT INFORMATION
  Report Type: 
  Country: None (occurrence: None)
  Receive Date: 20101119
  Receipt Date: 20101101
  Transmission Date: 20110411
  Serious: Yes (Hospitalization, Other)
  Sender: FDA-Public Use
  Company Number: JP-AMGEN-QUU437020

PATIENT

DRUGS (43)
  1. ENBREL [Suspect]
     Dosage: UNK UNK, UNK
     Route: 058
  2. ENBREL [Suspect]
     Route: 058
     Dates: start: 20090116, end: 20090116
  3. ENBREL [Suspect]
     Route: 058
     Dates: start: 20090427, end: 20090904
  4. ENBREL [Suspect]
     Route: 058
     Dates: start: 20091013, end: 20091026
  5. ENBREL [Suspect]
     Route: 058
     Dates: start: 20091125, end: 20100412
  6. PROGRAF [Suspect]
     Indication: RHEUMATOID ARTHRITIS
     Route: 048
     Dates: start: 20100319, end: 20100429
  7. PREDNISOLONE [Suspect]
     Indication: RHEUMATOID ARTHRITIS
     Route: 048
     Dates: start: 20080909, end: 20081014
  8. PREDNISOLONE [Suspect]
     Dosage: UNKNOWN DAILY DOSAGE
     Route: 048
     Dates: start: 20081015, end: 20090212
  9. PREDNISOLONE [Suspect]
     Route: 048
     Dates: start: 20100122, end: 20100407
  10. PREDNISOLONE [Suspect]
     Route: 048
     Dates: start: 20100408, end: 20100415
  11. PREDNISOLONE [Suspect]
     Route: 048
     Dates: start: 20100416, end: 20100515
  12. PREDNISOLONE [Suspect]
     Route: 048
     Dates: start: 20100516, end: 20100517
  13. PREDNISOLONE [Suspect]
     Route: 048
     Dates: start: 20100518, end: 20100524
  14. PREDNISOLONE [Suspect]
     Route: 048
     Dates: start: 20100525, end: 20100701
  15. PREDNISOLONE [Suspect]
     Route: 048
     Dates: start: 20100702, end: 20100902
  16. PREDNISOLONE [Suspect]
     Route: 048
     Dates: start: 20100903
  17. PREDNISOLONE [Suspect]
     Indication: RHEUMATOID ARTHRITIS
     Dosage: 15 MG, QD
     Route: 048
     Dates: start: 20080909
  18. TACROLIMUS [Concomitant]
     Dosage: UNK UNK, UNK
     Route: 048
  19. SELOKEEN [Concomitant]
     Indication: HYPERTENSION
     Dosage: DOSE VARIED FROM 5 MG DAILY TO 40 MG DAILY
     Route: 048
     Dates: start: 20080104, end: 20091229
  20. SELOKEEN [Concomitant]
     Route: 048
     Dates: start: 20091230, end: 20100107
  21. SELOKEEN [Concomitant]
     Route: 048
     Dates: start: 20100108, end: 20100114
  22. SELOKEEN [Concomitant]
     Route: 048
     Dates: start: 20100115, end: 20100121
  23. SELOKEEN [Concomitant]
     Dates: start: 20100122, end: 20100401
  24. SELOKEEN [Concomitant]
     Route: 048
     Dates: start: 20100402
  25. DORNER [Concomitant]
     Indication: NEUROPATHY PERIPHERAL
     Route: 048
     Dates: start: 20090501
  26. CYANOCOBALAMIN [Concomitant]
     Route: 048
     Dates: start: 20100219
  27. GASMOTIN [Concomitant]
     Indication: PROPHYLAXIS
     Route: 048
     Dates: start: 20031024
  28. BIOFERMIN [Concomitant]
     Indication: PROPHYLAXIS
     Route: 048
     Dates: start: 20090922
  29. NEUQUINON [Concomitant]
     Indication: PROPHYLAXIS
     Route: 048
     Dates: start: 20091002
  30. BASEN [Concomitant]
     Indication: DIABETES MELLITUS
     Route: 048
     Dates: start: 20091002
  31. PURSENNID [Concomitant]
     Indication: CONSTIPATION
     Route: 048
     Dates: start: 20050720
  32. OMEPRAL [Concomitant]
     Indication: PROPHYLAXIS
     Route: 048
     Dates: start: 20090220
  33. DEPAS [Concomitant]
     Indication: INSOMNIA
     Dosage: 0.5 MG, FREQUENCY UNK
     Dates: start: 20091120, end: 20100524
  34. FOLIAMIN [Concomitant]
     Indication: NEUROPATHY PERIPHERAL
     Route: 048
     Dates: start: 20100108
  35. DOPS [Concomitant]
     Indication: PROPHYLAXIS
     Route: 048
     Dates: start: 20060109, end: 20060620
  36. DOPS [Concomitant]
     Route: 048
     Dates: start: 20060621, end: 20071115
  37. DOPS [Concomitant]
     Route: 048
     Dates: start: 20071116
  38. RISUMIC [Concomitant]
     Indication: PROPHYLAXIS
     Route: 048
     Dates: start: 20051221, end: 20060620
  39. RISUMIC [Concomitant]
     Route: 048
     Dates: start: 20060621, end: 20070109
  40. RISUMIC [Concomitant]
     Route: 048
     Dates: start: 20070110, end: 20070123
  41. RISUMIC [Concomitant]
     Route: 048
     Dates: start: 20070124, end: 20071115
  42. RISUMIC [Concomitant]
     Route: 048
     Dates: start: 20071116
  43. ALFAROL [Concomitant]
     Indication: OSTEOPOROSIS
     Dosage: UNKNOWN DAILY DOSE
     Route: 048
     Dates: start: 19941207, end: 20100916

REACTIONS (3)
  - BLOOD PRESSURE DECREASED [None]
  - THERAPEUTIC RESPONSE DECREASED [None]
  - TOOTH ABSCESS [None]
